FAERS Safety Report 7770012-9 (Version None)
Quarter: 2011Q3

REPORT INFORMATION
  Report Type: 
  Country: None (occurrence: None)
  Receive Date: 20110920
  Receipt Date: 20110905
  Transmission Date: 20111222
  Serious: Yes (Hospitalization)
  Sender: FDA-Public Use
  Company Number: AUR-APL-2011-04926

PATIENT
  Age: 68 Year
  Sex: Male

DRUGS (22)
  1. SIMVASTATIN [Suspect]
     Indication: HYPERCHOLESTEROLAEMIA
     Dosage: (80 MG, AT NIGHT)
  2. PREDNISOLONE [Suspect]
     Indication: PRODUCT USED FOR UNKNOWN INDICATION
     Dosage: 5 MG (2.5 MG, 2 IN 1 D)
  3. FUROSEMIDE [Concomitant]
  4. FOLIC ACID [Concomitant]
  5. ACETAMINOPHEN [Concomitant]
  6. IMDUR [Suspect]
     Indication: PRODUCT USED FOR UNKNOWN INDICATION
     Dosage: (60 MG, EACH MORNING)
  7. NITROGLYCERIN [Suspect]
     Indication: PRODUCT USED FOR UNKNOWN INDICATION
     Dosage: (AS REQUIRED)
  8. METFORMIN HCL [Concomitant]
  9. OMEPRAZOLE [Concomitant]
  10. GLICLAZIDE (GLICLAZIDE) [Concomitant]
  11. METHYLDOPA [Suspect]
     Indication: PRODUCT USED FOR UNKNOWN INDICATION
     Dosage: 500 MG (250 MG, 2 IN 1 D)
  12. ALLOPURINOL [Concomitant]
  13. SILDENAFIL CITRATE [Suspect]
     Indication: PRODUCT USED FOR UNKNOWN INDICATION
     Dosage: (50 MG, AS REQUIRED)
  14. TRANDOLAPRIL [Concomitant]
  15. ADALAT [Suspect]
     Indication: PRODUCT USED FOR UNKNOWN INDICATION
     Dosage: (30 MG, EACH MORNING)
  16. MYLANTA MIXTURE (MYLANTA /00036701/) [Concomitant]
  17. CITRAVESCENT (SODIUM BICARBONATE) [Concomitant]
  18. TEMAZEPAM [Concomitant]
  19. ATENOLOL [Suspect]
     Indication: PRODUCT USED FOR UNKNOWN INDICATION
     Dosage: (25 MG, AT NIGHT)
  20. DILTIAZEM HCL [Suspect]
     Indication: PRODUCT USED FOR UNKNOWN INDICATION
     Dosage: (240 MG, EACH MORNING)
  21. FELODIPINE [Suspect]
     Indication: PRODUCT USED FOR UNKNOWN INDICATION
     Dosage: (2.5 MG, EACH MORNING)
  22. ASPIRIN [Concomitant]

REACTIONS (3)
  - HYPERTENSION [None]
  - ANGINA UNSTABLE [None]
  - ERECTILE DYSFUNCTION [None]
